FAERS Safety Report 4541284-9 (Version None)
Quarter: 2004Q4

REPORT INFORMATION
  Report Type: 
  Country: None (occurrence: None)
  Receive Date: 20041223
  Receipt Date: 20041117
  Transmission Date: 20050328
  Serious: No
  Sender: FDA-Public Use
  Company Number: US-JNJFOC-20041104878

PATIENT
  Age: 14 Year
  Sex: Female
  Weight: 49.8957 kg

DRUGS (4)
  1. ORTHO EVRA [Suspect]
     Indication: MENSTRUATION IRREGULAR
     Dosage: 1 DOSE(S), 3 IN 4 WEEK, TRANSDERMAL
     Route: 062
     Dates: start: 20040905
  2. ADVAIR INHALER (SERETIDE MITE) [Concomitant]
  3. NASALCROM (COMOGLICATE SODIUM) [Concomitant]
  4. SINGULAIR [Concomitant]

REACTIONS (4)
  - DYSMENORRHOEA [None]
  - FEELING COLD [None]
  - METRORRHAGIA [None]
  - SKIN DISCOLOURATION [None]
